FAERS Safety Report 17157868 (Version 1)
Quarter: 2019Q4

REPORT INFORMATION
  Report Type: Spontaneous
  Country: US (occurrence: US)
  Receive Date: 20191213
  Receipt Date: 20191213
  Transmission Date: 20200122
  Serious: Yes (Hospitalization)
  Sender: FDA-Public Use
  Company Number: None

PATIENT
  Age: 81 Year
  Sex: Female
  Weight: 70.1 kg

DRUGS (4)
  1. DOCUSATE 100MG DAILY [Concomitant]
  2. FLUTICASONE 50MCG 2 SPRAYS DAILY [Concomitant]
  3. VITAMIN C 500MG DAILY [Concomitant]
  4. RIVAROXABAN [Suspect]
     Active Substance: RIVAROXABAN
     Indication: FACTOR V LEIDEN MUTATION
     Route: 048
     Dates: start: 20141111

REACTIONS (3)
  - Nausea [None]
  - Abdominal pain [None]
  - Gastrointestinal haemorrhage [None]

NARRATIVE: CASE EVENT DATE: 20150511
